FAERS Safety Report 5266480-7 (Version None)
Quarter: 2007Q1

REPORT INFORMATION
  Report Type: 
  Country: None (occurrence: None)
  Receive Date: 20070315
  Receipt Date: 20070309
  Transmission Date: 20070707
  Serious: Yes (Hospitalization)
  Sender: FDA-Public Use
  Company Number: PL-ABBOTT-07P-129-0361365-00

PATIENT
  Sex: Female
  Weight: 71.732 kg

DRUGS (15)
  1. RITONAVIR SOFT GELATIN CAPSULES [Suspect]
     Indication: HIV INFECTION
     Route: 048
     Dates: start: 20060714
  2. TMC125 (BLINDED) [Concomitant]
     Indication: HIV INFECTION
     Route: 048
     Dates: start: 20060714
  3. TMC114 [Concomitant]
     Indication: HIV INFECTION
     Route: 048
     Dates: start: 20060714
  4. LAMIVUDINE [Concomitant]
     Indication: HIV INFECTION
     Route: 048
     Dates: start: 20060422
  5. BACTRIM [Concomitant]
     Indication: ANTIFUNGAL PROPHYLAXIS
     Route: 048
  6. BACTRIM [Concomitant]
     Indication: TOXOPLASMOSIS PROPHYLAXIS
  7. CLARITHROMYCIN [Concomitant]
     Indication: PROPHYLAXIS
     Route: 048
  8. HYDROXYZINE [Concomitant]
     Indication: ANXIETY
     Route: 048
  9. METOPROLOL SUCCINATE [Concomitant]
     Indication: TACHYCARDIA
     Route: 048
  10. LACTOBACILLUS RHAMNOSUS (ALL OTHER THERAPEUTIC PRODUCTS) [Concomitant]
     Indication: ANTIDIARRHOEAL SUPPORTIVE CARE
     Route: 065
  11. LOMOTIL [Concomitant]
     Indication: DIARRHOEA
     Route: 048
     Dates: start: 20060711
  12. PREDNISONE [Concomitant]
     Indication: CYTOMEGALOVIRUS CHORIORETINITIS
     Route: 048
  13. LEXIVA [Concomitant]
     Indication: HIV INFECTION
     Route: 048
     Dates: start: 20060422
  14. EFAVIRENZ [Concomitant]
     Indication: HIV INFECTION
     Route: 048
     Dates: start: 20060422
  15. TENOFOVIR DISOPROXIL FUMARATE [Concomitant]
     Indication: DRUG USE FOR UNKNOWN INDICATION
     Route: 048
     Dates: start: 20060422

REACTIONS (1)
  - IMMUNE RECONSTITUTION SYNDROME [None]
